FAERS Safety Report 7339937-2 (Version None)
Quarter: 2011Q1

REPORT INFORMATION
  Report Type: 
  Country: None (occurrence: None)
  Receive Date: 20110228
  Receipt Date: 20110209
  Transmission Date: 20110831
  Serious: Yes (Hospitalization)
  Sender: FDA-Public Use
  Company Number: 2011-0196

PATIENT
  Age: 76 Year
  Sex: Male

DRUGS (16)
  1. APO-GO PFS (APO-GO) (APOMORPHINE HYDROCHLORIDE) (APOMORPHINE HYDROCHLO [Suspect]
     Indication: PARKINSON'S DISEASE
     Dosage: (2.8 MG/H (44.8 MG TOTAL/DAY) (2.8 MG, 16 IN 24 H), SUBCUTANEOUS) (4.5 MG/H (72 MG TOTAL/DAY) (4.5 M
     Route: 058
     Dates: start: 20101227, end: 20110103
  2. APO-GO PFS (APO-GO) (APOMORPHINE HYDROCHLORIDE) (APOMORPHINE HYDROCHLO [Suspect]
     Indication: PARKINSON'S DISEASE
     Dosage: (2.8 MG/H (44.8 MG TOTAL/DAY) (2.8 MG, 16 IN 24 H), SUBCUTANEOUS) (4.5 MG/H (72 MG TOTAL/DAY) (4.5 M
     Route: 058
     Dates: start: 20110104, end: 20110114
  3. LECODOPA/CARBIDOPA (SINEMET) [Concomitant]
  4. SYMBIOCORT (BUDESONIDE W/ FORMOTEROL FUMARATE) [Concomitant]
  5. OXYCODONE/NALOXONE (ALL OTHER THERAPEUTIC PRODUCTS) [Concomitant]
  6. SIMETICONE (DIMETICONE, ACTIVATED) [Concomitant]
  7. LEVODOPA/BENSERAZIDE (MADOPAR /00349201/) [Concomitant]
  8. TOLCAPONE (TOLCAPONE) [Concomitant]
  9. THEOPHYLLINE [Concomitant]
  10. ASPIRIN [Concomitant]
  11. PANTOPRAZOLE [Concomitant]
  12. CLONAZEPAM [Concomitant]
  13. AMANTADINE HCL [Concomitant]
  14. PIRIBEDIL (PIRIBEDIL) [Concomitant]
  15. TORSEMIDE [Concomitant]
  16. METAMIZOLE (METAMIZOLE) [Concomitant]

REACTIONS (5)
  - INFUSION SITE MASS [None]
  - INFUSION SITE ERYTHEMA [None]
  - URTICARIA [None]
  - GENERALISED ERYTHEMA [None]
  - OEDEMA PERIPHERAL [None]
